FAERS Safety Report 6139671-0 (Version None)
Quarter: 2009Q2

REPORT INFORMATION
  Report Type: 
  Country: None (occurrence: None)
  Receive Date: 20090401
  Receipt Date: 20090209
  Transmission Date: 20091009
  Serious: Yes (Hospitalization, Other)
  Sender: FDA-Public Use
  Company Number: GB-ASTRAZENECA-2009GB00742

PATIENT
  Age: 10080 Day
  Sex: Male

DRUGS (1)
  1. ENTOCORT EC [Suspect]
     Indication: COLITIS COLLAGENOUS
     Route: 048
     Dates: start: 20010101

REACTIONS (2)
  - HYPOMANIA [None]
  - POST-TRAUMATIC STRESS DISORDER [None]
